FAERS Safety Report 11873200 (Version 1)
Quarter: 2015Q4

REPORT INFORMATION
  Report Type: Spontaneous
  Country: FR (occurrence: FR)
  Receive Date: 20151228
  Receipt Date: 20151228
  Transmission Date: 20160305
  Serious: Yes (Hospitalization)
  Sender: FDA-Public Use
  Company Number: FR-SA-2015SA104372

PATIENT
  Age: 78 Year
  Sex: Male

DRUGS (9)
  1. PROCTOLOG [Concomitant]
     Active Substance: TRIMEBUTINE
     Dosage: 1 SUPPOSITORY THE EVENING 1X/WEEK
  2. URBANYL [Suspect]
     Active Substance: CLOBAZAM
     Dosage: DOSE:10MG IN THE EVENING
     Route: 048
     Dates: end: 20150205
  3. AERIUS [Suspect]
     Active Substance: DESLORATADINE
     Dosage: DOSE:5MG IN EVENING
     Route: 048
     Dates: end: 20150205
  4. FUROSEMIDE. [Suspect]
     Active Substance: FUROSEMIDE
     Dosage: DISCONTINUED ON 10 APRIL BY THE TREATING DOCTOR FOR SUSPICION OF LINK WITH SKIN ERUPTION
     Route: 048
     Dates: end: 20150410
  5. MACROGOL [Concomitant]
     Active Substance: POLYETHYLENE GLYCOLS
     Dosage: 10: 1 SACHET IN THE MORNING, 3X/WEEK
  6. AZITHROMYCIN [Suspect]
     Active Substance: AZITHROMYCIN ANHYDROUS
     Route: 048
     Dates: start: 201502, end: 201502
  7. CHONDROSULF [Suspect]
     Active Substance: CHONDROITIN SULFATE (CHICKEN)
     Dosage: DOSE:3 CAPSULE IN THE MORNING
     Route: 048
     Dates: end: 20150205
  8. ONBREZ BREEZHALER [Concomitant]
     Active Substance: INDACATEROL
     Dosage: 150 MICROGRAMS, POWDER FOR DAY(S)) INHALATION IN CAPSULE?EVERY MORNING
     Route: 055
  9. RHINOCORT [Suspect]
     Active Substance: BUDESONIDE
     Dosage: RHINOCORT 0.06 MG: 1 SPRAY IN THE MORNING IN EACH NOSTRIL.
     Route: 045
     Dates: end: 20150205

REACTIONS (3)
  - Eczema [Recovered/Resolved]
  - Rash maculo-papular [Recovered/Resolved]
  - Pruritus [Recovered/Resolved]

NARRATIVE: CASE EVENT DATE: 201502
